FAERS Safety Report 8174401-2 (Version None)
Quarter: 2012Q1

REPORT INFORMATION
  Report Type: 
  Country: None (occurrence: None)
  Receive Date: 20120229
  Receipt Date: 20120217
  Transmission Date: 20120608
  Serious: Yes (Hospitalization)
  Sender: FDA-Public Use
  Company Number: SK-ELI_LILLY_AND_COMPANY-SK201201005706

PATIENT
  Sex: Female

DRUGS (6)
  1. ERLOTINIB HYDROCHLORIDE [Concomitant]
     Dosage: UNK, UNKNOWN
     Dates: end: 20111212
  2. FRAXIPARINE [Concomitant]
     Indication: ANTICOAGULANT THERAPY
  3. ALIMTA [Suspect]
     Indication: NON-SMALL CELL LUNG CANCER
     Dosage: 800 MG, EVERY 21 DAYS
     Route: 042
     Dates: start: 20111220
  4. VITAMIN B-12 [Concomitant]
     Dosage: UNK, UNKNOWN
  5. FOLIC ACID [Concomitant]
     Dosage: UNK, UNKNOWN
  6. CORTICOSTEROID NOS [Concomitant]
     Dosage: UNK, UNKNOWN

REACTIONS (5)
  - HAEMATOTOXICITY [None]
  - HYPOTENSION [None]
  - ERYTHEMA [None]
  - DECREASED APPETITE [None]
  - PRURITUS [None]
